FAERS Safety Report 9647900 (Version 1)
Quarter: 2013Q4

REPORT INFORMATION
  Report Type: Report from Study
  Country: CA (occurrence: CA)
  Receive Date: 20131028
  Receipt Date: 20131028
  Transmission Date: 20140711
  Serious: Yes (Hospitalization)
  Sender: FDA-Public Use
  Company Number: CA-JNJFOC-20131012369

PATIENT
  Age: 40 Year
  Sex: Female
  Weight: 53 kg

DRUGS (3)
  1. REMICADE [Suspect]
     Indication: CROHN^S DISEASE
     Route: 042
     Dates: start: 20070917
  2. IMURAN [Concomitant]
     Route: 048
  3. FOSAMAX [Concomitant]
     Route: 048

REACTIONS (4)
  - Vomiting [Unknown]
  - Lethargy [Unknown]
  - Pyrexia [Unknown]
  - Arthralgia [Unknown]
